FAERS Safety Report 9553261 (Version 1)
Quarter: 2013Q3

REPORT INFORMATION
  Report Type: Spontaneous
  Country: US (occurrence: None)
  Receive Date: 20130924
  Receipt Date: 20130924
  Transmission Date: 20140515
  Serious: No
  Sender: FDA-Public Use
  Company Number: None

PATIENT
  Age: 52 Year
  Sex: Female
  Weight: 83.2 kg

DRUGS (4)
  1. CEFEPIME [Suspect]
     Indication: OSTEOMYELITIS
     Route: 042
     Dates: start: 20130912, end: 20130913
  2. CEFEPIME [Suspect]
     Indication: INTERVERTEBRAL DISCITIS
     Route: 042
     Dates: start: 20130912, end: 20130913
  3. SODIUM CHLORIDE [Suspect]
     Indication: OSTEOMYELITIS
     Dates: start: 20130912, end: 20130903
  4. SODIUM CHLORIDE [Suspect]
     Indication: INTERVERTEBRAL DISCITIS
     Dates: start: 20130912, end: 20130903

REACTIONS (9)
  - Diarrhoea [None]
  - Mucous membrane disorder [None]
  - Nausea [None]
  - Product odour abnormal [None]
  - Injection site pain [None]
  - Dizziness [None]
  - Catheter site pain [None]
  - Anorectal discomfort [None]
  - Genital burning sensation [None]
